FAERS Safety Report 8096384-6 (Version None)
Quarter: 2012Q1

REPORT INFORMATION
  Report Type: 
  Country: None (occurrence: None)
  Receive Date: 20120129
  Receipt Date: 20111109
  Transmission Date: 20120608
  Serious: No
  Sender: FDA-Public Use
  Company Number: US-ABBOTT-11P-163-0872790-00

PATIENT
  Sex: Female

DRUGS (6)
  1. RANITIDINE [Concomitant]
     Indication: GASTROOESOPHAGEAL REFLUX DISEASE
  2. AMITRIPTYLINE HCL [Concomitant]
     Indication: IRRITABLE BOWEL SYNDROME
  3. HUMIRA [Suspect]
     Indication: CROHN'S DISEASE
     Dates: start: 20110719, end: 20111101
  4. MERCAPTOPURINE [Concomitant]
     Indication: CROHN'S DISEASE
  5. STEROIDS [Concomitant]
     Indication: PRODUCT USED FOR UNKNOWN INDICATION
     Dosage: TAPERED OFF
  6. IRON [Concomitant]
     Indication: IRON DEFICIENCY
     Dates: start: 20110101

REACTIONS (6)
  - INFLAMMATION [None]
  - C-REACTIVE PROTEIN INCREASED [None]
  - CROHN'S DISEASE [None]
  - ABDOMINAL PAIN [None]
  - RED BLOOD CELL SEDIMENTATION RATE INCREASED [None]
  - ANAEMIA [None]
